FAERS Safety Report 6234521-6 (Version None)
Quarter: 2009Q2

REPORT INFORMATION
  Report Type: 
  Country: None (occurrence: None)
  Receive Date: 20090618
  Receipt Date: 20090202
  Transmission Date: 20091009
  Serious: No
  Sender: FDA-Public Use
  Company Number: US-BRISTOL-MYERS SQUIBB COMPANY-14505929

PATIENT
  Age: 55 Year
  Sex: Male

DRUGS (3)
  1. CARBIDOPA + LEVODOPA [Suspect]
     Route: 048
     Dates: end: 20050222
  2. NEXIUM [Suspect]
     Route: 065
     Dates: end: 20050222
  3. PAXIL [Suspect]
     Route: 065
     Dates: end: 20050222

REACTIONS (1)
  - ADVERSE EVENT [None]
